FAERS Safety Report 9647504 (Version 1)
Quarter: 2013Q4

REPORT INFORMATION
  Report Type: Report from Study
  Country: US (occurrence: US)
  Receive Date: 20131028
  Receipt Date: 20131028
  Transmission Date: 20140711
  Serious: Yes (Hospitalization)
  Sender: FDA-Public Use
  Company Number: US-ROCHE-1294159

PATIENT
  Age: 65 Year
  Sex: Female
  Weight: 76.6 kg

DRUGS (2)
  1. BEVACIZUMAB [Suspect]
     Indication: GLIOBLASTOMA MULTIFORME
     Dosage: LAST DOSE PRIOR TO SAE ON 10/SEP/2013
     Route: 042
     Dates: start: 20130620
  2. BLINDED DASATINIB [Suspect]
     Indication: GLIOBLASTOMA MULTIFORME
     Dosage: LAST DOSE PRIOR TO SAE ON 21/OCT/2013
     Route: 048
     Dates: start: 20130620

REACTIONS (1)
  - Convulsion [Not Recovered/Not Resolved]
